FAERS Safety Report 5286555-6 (Version None)
Quarter: 2007Q2

REPORT INFORMATION
  Report Type: 
  Country: None (occurrence: None)
  Receive Date: 20070404
  Receipt Date: 20070328
  Transmission Date: 20071010
  Serious: Yes (Hospitalization)
  Sender: FDA-Public Use
  Company Number: NO-ELI_LILLY_AND_COMPANY-NO200703006212

PATIENT
  Age: 60 Year
  Sex: Male

DRUGS (3)
  1. ZYPREXA [Suspect]
     Indication: DEPRESSION
     Dosage: 10 MG, DAILY (1/D)
     Route: 048
  2. REMERON [Concomitant]
     Indication: DEPRESSION
     Dosage: 30 MG, DAILY (1/D)
     Route: 048
  3. EFFEXOR [Concomitant]
     Indication: DEPRESSION
     Dosage: 150 MG, DAILY (1/D)
     Route: 048

REACTIONS (8)
  - CHEST INJURY [None]
  - FALL [None]
  - INFECTION [None]
  - JOINT INJURY [None]
  - PNEUMONIA [None]
  - RENAL FAILURE ACUTE [None]
  - RHABDOMYOLYSIS [None]
  - SEPSIS [None]
